FAERS Safety Report 14294832 (Version 2)
Quarter: 2018Q1

REPORT INFORMATION
  Report Type: Report from Study
  Country: NZ (occurrence: NZ)
  Receive Date: 20171218
  Receipt Date: 20180123
  Transmission Date: 20180509
  Serious: Yes (Hospitalization, Other)
  Sender: FDA-Public Use
  Company Number: NZ-BIOGEN-2017BI00474052

PATIENT
  Age: 39 Year
  Sex: Female

DRUGS (6)
  1. CLONAZEPAM. [Concomitant]
     Active Substance: CLONAZEPAM
     Indication: ANXIETY
     Route: 065
  2. TECFIDERA [Suspect]
     Active Substance: DIMETHYL FUMARATE
     Indication: MULTIPLE SCLEROSIS
     Dosage: STARTING DOSE
     Route: 048
     Dates: start: 20171017
  3. TECFIDERA [Suspect]
     Active Substance: DIMETHYL FUMARATE
     Dosage: MAINTENANCE DOSE
     Route: 048
  4. TECFIDERA [Suspect]
     Active Substance: DIMETHYL FUMARATE
     Route: 048
     Dates: start: 20171017
  5. TECFIDERA [Suspect]
     Active Substance: DIMETHYL FUMARATE
     Dosage: MAINTENANCE DOSE
     Route: 048
     Dates: start: 20171017
  6. OMEPRAZOLE. [Concomitant]
     Active Substance: OMEPRAZOLE
     Indication: GASTROOESOPHAGEAL REFLUX DISEASE
     Route: 065

REACTIONS (22)
  - Pain [Unknown]
  - Underdose [Unknown]
  - Abdominal pain upper [Not Recovered/Not Resolved]
  - Ovarian cyst ruptured [Unknown]
  - Flatulence [Unknown]
  - Respiratory tract infection [Unknown]
  - Fatigue [Unknown]
  - Chest discomfort [Not Recovered/Not Resolved]
  - Multiple sclerosis relapse [Not Recovered/Not Resolved]
  - Abdominal distension [Unknown]
  - Emotional distress [Unknown]
  - Rash [Not Recovered/Not Resolved]
  - Flushing [Recovered/Resolved with Sequelae]
  - Alopecia [Recovered/Resolved]
  - Gastric cyst [Not Recovered/Not Resolved]
  - Loss of consciousness [Recovered/Resolved]
  - Throat tightness [Not Recovered/Not Resolved]
  - Skin infection [Not Recovered/Not Resolved]
  - Anxiety [Unknown]
  - Skin disorder [Recovered/Resolved]
  - Rash pustular [Not Recovered/Not Resolved]
  - Urinary incontinence [Not Recovered/Not Resolved]

NARRATIVE: CASE EVENT DATE: 20171017
